FAERS Safety Report 6373493-0 (Version None)
Quarter: 2009Q3

REPORT INFORMATION
  Report Type: 
  Country: None (occurrence: None)
  Receive Date: 20090924
  Receipt Date: 20090602
  Transmission Date: 20100115
  Serious: Yes (Hospitalization)
  Sender: FDA-Public Use
  Company Number: US-ASTRAZENECA-2009UW03759

PATIENT
  Age: 406 Month
  Sex: Female
  Weight: 76.2 kg

DRUGS (1)
  1. SEROQUEL [Suspect]
     Indication: SLEEP DISORDER
     Dosage: ONCE A DAY
     Route: 048
     Dates: start: 20060101

REACTIONS (2)
  - DEPRESSION [None]
  - PANCREATITIS [None]
